FAERS Safety Report 14923171 (Version 5)
Quarter: 2018Q2

REPORT INFORMATION
  Report Type: Spontaneous
  Country: JP (occurrence: JP)
  Receive Date: 20180522
  Receipt Date: 20180628
  Transmission Date: 20180711
  Serious: Yes (Hospitalization)
  Sender: FDA-Public Use
  Company Number: JP-ROCHE-2127528

PATIENT
  Age: 54 Year
  Sex: Male
  Weight: 75 kg

DRUGS (5)
  1. XELODA [Suspect]
     Active Substance: CAPECITABINE
     Route: 048
     Dates: start: 20180222, end: 20180307
  2. XELODA [Suspect]
     Active Substance: CAPECITABINE
     Route: 048
     Dates: start: 20180315, end: 20180328
  3. XELODA [Suspect]
     Active Substance: CAPECITABINE
     Route: 048
     Dates: start: 20180412, end: 20180425
  4. XELODA [Suspect]
     Active Substance: CAPECITABINE
     Indication: COLON CANCER
     Dosage: 2 WEEKS ADMINISTRATION FOLLOWED BY ONE WEEK REST
     Route: 048
     Dates: start: 20180201, end: 20180214
  5. XELODA [Suspect]
     Active Substance: CAPECITABINE
     Dosage: ONLY FOR 2 DAYS
     Route: 048
     Dates: start: 20180503, end: 20180504

REACTIONS (3)
  - VIth nerve paralysis [Recovering/Resolving]
  - Nasopharyngitis [Recovered/Resolved]
  - Miller Fisher syndrome [Recovering/Resolving]

NARRATIVE: CASE EVENT DATE: 201804
